FAERS Safety Report 20888921 (Version 2)
Quarter: 2022Q4

REPORT INFORMATION
  Report Type: Spontaneous
  Country: US (occurrence: US)
  Receive Date: 20220529
  Receipt Date: 20221012
  Transmission Date: 20230112
  Serious: Yes (Hospitalization, Other)
  Sender: FDA-Public Use
  Company Number: US-BRISTOL-MYERS SQUIBB COMPANY-2022-045633

PATIENT
  Age: 59 Year
  Sex: Female

DRUGS (1)
  1. REVLIMID [Suspect]
     Active Substance: LENALIDOMIDE
     Indication: Diffuse large B-cell lymphoma
     Dosage: EXPIRY DATE FOR A3738A: 31-AUG-2024
     Route: 048
     Dates: start: 20220426

REACTIONS (3)
  - Adverse event [Unknown]
  - Off label use [Unknown]
  - Drug ineffective [Unknown]
